FAERS Safety Report 22279263 (Version 1)
Quarter: 2023Q2

REPORT INFORMATION
  Report Type: Spontaneous
  Country: CA (occurrence: CA)
  Receive Date: 20230503
  Receipt Date: 20230503
  Transmission Date: 20230722
  Serious: Yes (Other)
  Sender: FDA-Public Use
  Company Number: CA-ORGANON-O2305CAN000159

PATIENT
  Age: 85 Year
  Sex: Male
  Weight: 99.773 kg

DRUGS (1)
  1. COZAAR [Suspect]
     Active Substance: LOSARTAN POTASSIUM
     Indication: Hypertension
     Dosage: 100 MILLIGRAM, 1 EVERY 1 DAYS
     Route: 065

REACTIONS (5)
  - Blood pressure increased [Recovered/Resolved]
  - Insomnia [Recovered/Resolved]
  - Paraesthesia [Recovered/Resolved]
  - Product substitution issue [Recovered/Resolved]
  - Weight increased [Recovered/Resolved]
